FAERS Safety Report 9187249 (Version 7)
Quarter: 2015Q1

REPORT INFORMATION
  Report Type: Report from Study
  Country: US (occurrence: US)
  Receive Date: 20130322
  Receipt Date: 20150126
  Transmission Date: 20150721
  Serious: Yes (Hospitalization, Other)
  Sender: FDA-Public Use
  Company Number: US-ACTELION-A-US2013-80671

PATIENT
  Age: 84 Year
  Sex: Female

DRUGS (5)
  1. TRACLEER [Suspect]
     Active Substance: BOSENTAN\BOSENTAN MONOHYDRATE
     Indication: PULMONARY ARTERIAL HYPERTENSION
     Dosage: 125 MG, BID
     Route: 048
     Dates: start: 2008
  2. OXYGEN. [Concomitant]
     Active Substance: OXYGEN
  3. TRACLEER [Suspect]
     Active Substance: BOSENTAN\BOSENTAN MONOHYDRATE
     Dosage: 62.5 MG, BID
     Route: 048
     Dates: start: 2008, end: 2008
  4. LASIX [Concomitant]
     Active Substance: FUROSEMIDE
  5. PLAVIX [Concomitant]
     Active Substance: CLOPIDOGREL BISULFATE

REACTIONS (11)
  - Sepsis [Unknown]
  - Radiotherapy [Unknown]
  - Asthenia [Unknown]
  - Kidney infection [Recovering/Resolving]
  - Fall [Unknown]
  - Surgery [Unknown]
  - Femoral neck fracture [Recovered/Resolved]
  - Hip arthroplasty [Recovered/Resolved]
  - Hip fracture [Unknown]
  - Infection [Unknown]
  - Skin cancer [Unknown]

NARRATIVE: CASE EVENT DATE: 201301
